FAERS Safety Report 9846295 (Version 3)
Quarter: 2015Q4

REPORT INFORMATION
  Report Type: Report from Study
  Country: US (occurrence: US)
  Receive Date: 20140127
  Receipt Date: 20151030
  Transmission Date: 20160305
  Serious: Yes (Hospitalization)
  Sender: FDA-Public Use
  Company Number: US-ROCHE-1260343

PATIENT
  Sex: Female
  Weight: 82.54 kg

DRUGS (23)
  1. ZOFRAN [Concomitant]
     Active Substance: ONDANSETRON HYDROCHLORIDE
     Dosage: AS REQUIRED
     Route: 048
  2. AVELOX [Concomitant]
     Active Substance: MOXIFLOXACIN HYDROCHLORIDE
     Route: 065
  3. LORTAB (UNITED STATES) [Concomitant]
     Indication: PAIN
     Dosage: 5/500 MG
     Route: 065
  4. SINGULAIR [Concomitant]
     Active Substance: MONTELUKAST SODIUM
     Route: 048
  5. ZOFRAN [Concomitant]
     Active Substance: ONDANSETRON HYDROCHLORIDE
     Route: 048
  6. SOLU-MEDROL [Concomitant]
     Active Substance: METHYLPREDNISOLONE SODIUM SUCCINATE
     Route: 042
  7. XOLAIR [Suspect]
     Active Substance: OMALIZUMAB
     Indication: ASTHMA
     Route: 058
     Dates: start: 201304
  8. DOXYCYCLINE. [Concomitant]
     Active Substance: DOXYCYCLINE
  9. XOLAIR [Suspect]
     Active Substance: OMALIZUMAB
     Route: 058
  10. LEVAQUIN [Concomitant]
     Active Substance: LEVOFLOXACIN
     Dosage: 7 DAYS WITH 1 REFLLL
     Route: 048
  11. XANAX [Concomitant]
     Active Substance: ALPRAZOLAM
     Route: 048
  12. DEXAMETHASONE. [Concomitant]
     Active Substance: DEXAMETHASONE
     Route: 048
  13. AVELOX [Concomitant]
     Active Substance: MOXIFLOXACIN HYDROCHLORIDE
  14. HYDROCODONE TARTRATE/PARACETAMOL [Concomitant]
     Route: 048
  15. OMEPRAZOLE. [Concomitant]
     Active Substance: OMEPRAZOLE
     Route: 048
  16. PREDNISONE. [Concomitant]
     Active Substance: PREDNISONE
     Route: 048
  17. TYLENOL [Concomitant]
     Active Substance: ACETAMINOPHEN
  18. LEVOFLOXACIN. [Concomitant]
     Active Substance: LEVOFLOXACIN
     Route: 048
  19. EPIPEN [Concomitant]
     Active Substance: EPINEPHRINE
     Dosage: INJECTABLE KIT
     Route: 065
  20. ZETONNA [Concomitant]
     Active Substance: CICLESONIDE
     Dosage: TWO SPRAYS DALLY
     Route: 065
  21. CODEINE [Concomitant]
     Active Substance: CODEINE
  22. PROAIR HFA [Concomitant]
     Active Substance: ALBUTEROL SULFATE
     Dosage: TWO PUFFS
     Route: 065
  23. SYMBICORT [Concomitant]
     Active Substance: BUDESONIDE\FORMOTEROL FUMARATE DIHYDRATE
     Dosage: 160 MCG-4.5 MCG TWO PUFFS
     Route: 065

REACTIONS (29)
  - Malaise [Unknown]
  - Rhinorrhoea [Unknown]
  - Drug intolerance [Unknown]
  - Eye swelling [Unknown]
  - Pruritus [Unknown]
  - Blood immunoglobulin E increased [Unknown]
  - Paranasal sinus discomfort [Unknown]
  - Abdominal pain [Unknown]
  - Fatigue [Unknown]
  - Nasal congestion [Unknown]
  - Ovarian cyst [Unknown]
  - Cough [Unknown]
  - Blood pressure increased [Unknown]
  - Chills [Unknown]
  - Hypersensitivity [Unknown]
  - Tenderness [Unknown]
  - Productive cough [Recovering/Resolving]
  - Dyspnoea [Unknown]
  - Wheezing [Unknown]
  - Sputum discoloured [Unknown]
  - Chest discomfort [Unknown]
  - Sneezing [Unknown]
  - Pain [Unknown]
  - Headache [Unknown]
  - Chest pain [Unknown]
  - Bronchospasm [Unknown]
  - Asthma [Unknown]
  - Insomnia [Unknown]
  - Oropharyngeal pain [Unknown]
